FAERS Safety Report 25353156 (Version 1)
Quarter: 2025Q2

REPORT INFORMATION
  Report Type: Spontaneous
  Country: US (occurrence: US)
  Receive Date: 20250523
  Receipt Date: 20250523
  Transmission Date: 20250717
  Serious: Yes (Life-Threatening, Hospitalization, Other)
  Sender: ORGANON
  Company Number: US-ORGANON-O2505USA003075

PATIENT
  Sex: Female
  Weight: 70.306 kg

DRUGS (4)
  1. NEXPLANON [Suspect]
     Active Substance: ETONOGESTREL
     Indication: Contraception
     Route: 059
     Dates: start: 2020, end: 202501
  2. PREDNISONE [Suspect]
     Active Substance: PREDNISONE
     Route: 065
  3. NEXPLANON [Concomitant]
     Active Substance: ETONOGESTREL
     Route: 059
     Dates: start: 2014, end: 2017
  4. NEXPLANON [Concomitant]
     Active Substance: ETONOGESTREL
     Route: 059
     Dates: start: 2017, end: 2020

REACTIONS (6)
  - Carotid artery dissection [Recovering/Resolving]
  - Cerebrovascular accident [Recovering/Resolving]
  - Hormone level abnormal [Recovered/Resolved]
  - Mood swings [Recovered/Resolved]
  - Urticaria [Recovered/Resolved]
  - Incorrect product administration duration [Unknown]

NARRATIVE: CASE EVENT DATE: 20230101
